FAERS Safety Report 6050155-0 (Version None)
Quarter: 2009Q1

REPORT INFORMATION
  Report Type: 
  Country: None (occurrence: None)
  Receive Date: 20090121
  Receipt Date: 20090121
  Transmission Date: 20090719
  Serious: Yes (Hospitalization)
  Sender: FDA-Public Use
  Company Number: None

PATIENT
  Age: 71 Year
  Sex: Male
  Weight: 112.8549 kg

DRUGS (3)
  1. CLOFARABINE [Suspect]
     Indication: NON-HODGKIN'S LYMPHOMA RECURRENT
     Dosage: 4MG/M2
     Dates: start: 20090112
  2. CLOFARABINE [Suspect]
     Indication: NON-HODGKIN'S LYMPHOMA RECURRENT
     Dosage: 4MG/M2
     Dates: start: 20090113
  3. CLOFARABINE [Suspect]
     Indication: NON-HODGKIN'S LYMPHOMA RECURRENT
     Dosage: 4MG/M2
     Dates: start: 20090114

REACTIONS (1)
  - TUMOUR LYSIS SYNDROME [None]
